FAERS Safety Report 8285616-7 (Version None)
Quarter: 2012Q2

REPORT INFORMATION
  Report Type: 
  Country: None (occurrence: None)
  Receive Date: 20120413
  Receipt Date: 20120213
  Transmission Date: 20120825
  Serious: No
  Sender: FDA-Public Use
  Company Number: US-ASTRAZENECA-2012SE10074

PATIENT
  Age: 65 Year
  Sex: Male

DRUGS (4)
  1. PLAVIX [Concomitant]
  2. NEXIUM [Suspect]
     Route: 048
  3. ASPIRIN [Concomitant]
  4. BLOOD THINNERS [Concomitant]

REACTIONS (3)
  - GALLBLADDER DISORDER [None]
  - DRUG DOSE OMISSION [None]
  - ADVERSE EVENT [None]
